FAERS Safety Report 9381532 (Version 1)
Quarter: 2013Q3

REPORT INFORMATION
  Report Type: Spontaneous
  Country: US (occurrence: US)
  Receive Date: 20130703
  Receipt Date: 20130703
  Transmission Date: 20140515
  Serious: Yes (Other)
  Sender: FDA-Public Use
  Company Number: US-US-EMD SERONO, INC.-7024782

PATIENT
  Sex: Female

DRUGS (2)
  1. GONAL-F [Suspect]
     Indication: PRODUCT USED FOR UNKNOWN INDICATION
  2. MENOPUR [Suspect]
     Indication: PRODUCT USED FOR UNKNOWN INDICATION

REACTIONS (4)
  - Abortion spontaneous [Unknown]
  - Oestradiol abnormal [Unknown]
  - Oestradiol increased [Unknown]
  - Drug ineffective [Not Recovered/Not Resolved]
